FAERS Safety Report 23419483 (Version 1)
Quarter: 2024Q1

REPORT INFORMATION
  Report Type: Spontaneous
  Country: US (occurrence: US)
  Receive Date: 20240118
  Receipt Date: 20240118
  Transmission Date: 20240410
  Serious: Yes (Other)
  Sender: FDA-Public Use
  Company Number: US-ENDO PHARMACEUTICALS INC-2023-005423

PATIENT
  Sex: Male

DRUGS (16)
  1. ENDOCET [Suspect]
     Active Substance: ACETAMINOPHEN\OXYCODONE HYDROCHLORIDE
     Indication: Neuropathy peripheral
     Dosage: UNK UNKNOWN, UNKNOWN
     Route: 065
  2. ENDODAN [Suspect]
     Active Substance: ASPIRIN\OXYCODONE HYDROCHLORIDE
     Indication: Neuropathy peripheral
     Dosage: UNK UNKNOWN, UNKNOWN
     Route: 065
  3. OPANA ER [Suspect]
     Active Substance: OXYMORPHONE HYDROCHLORIDE
     Indication: Neuropathy peripheral
     Dosage: UNK UNKNOWN, UNKNOWN
     Route: 065
  4. ACETAMINOPHEN\OXYCODONE HYDROCHLORIDE [Suspect]
     Active Substance: ACETAMINOPHEN\OXYCODONE HYDROCHLORIDE
     Indication: Neuropathy peripheral
     Dosage: UNK UNKNOWN, UNKNOWN
     Route: 065
  5. PERCOCET [Suspect]
     Active Substance: ACETAMINOPHEN\OXYCODONE HYDROCHLORIDE
     Indication: Neuropathy peripheral
     Dosage: UNK UNKNOWN, UNKNOWN
     Route: 065
  6. PERCOCET [Suspect]
     Active Substance: ACETAMINOPHEN\OXYCODONE HYDROCHLORIDE
     Indication: Neuropathy peripheral
     Dosage: UNK UNKNOWN, UNKNOWN
     Route: 065
     Dates: start: 1998
  7. DEPODUR [Suspect]
     Active Substance: MORPHINE SULFATE
     Indication: Neuropathy peripheral
     Dosage: UNK UNKNOWN, UNKNOWN
     Route: 065
  8. ACETAMINOPHEN AND CAFFEINE [Suspect]
     Active Substance: ACETAMINOPHEN\CAFFEINE
     Indication: Neuropathy peripheral
     Dosage: UNK UNKNOWN, UNKNOWN
     Route: 065
  9. MORPHINE SULFATE [Suspect]
     Active Substance: MORPHINE SULFATE
     Indication: Neuropathy peripheral
     Dosage: UNK UNKNOWN, UNKNOWN
     Route: 065
  10. ACETAMINOPHEN\BUTALBITAL\CAFFEINE\CODEINE PHOSPHATE [Suspect]
     Active Substance: ACETAMINOPHEN\BUTALBITAL\CAFFEINE\CODEINE PHOSPHATE
     Indication: Neuropathy peripheral
     Dosage: UNK UNKNOWN, UNKNOWN
     Route: 065
  11. METHADONE HYDROCHLORIDE [Suspect]
     Active Substance: METHADONE HYDROCHLORIDE
     Indication: Neuropathy peripheral
     Dosage: UNK UNKNOWN, UNKNOWN
     Route: 065
  12. METHADONE HYDROCHLORIDE [Suspect]
     Active Substance: METHADONE HYDROCHLORIDE
     Indication: Neuropathy peripheral
     Dosage: UNK UNKNOWN, UNKNOWN
     Route: 065
  13. VICODIN [Suspect]
     Active Substance: ACETAMINOPHEN\HYDROCODONE BITARTRATE
     Indication: Neuropathy peripheral
     Dosage: UNK UNKNOWN, UNKNOWN
     Route: 065
     Dates: start: 1998
  14. MORPHINE [Suspect]
     Active Substance: MORPHINE
     Indication: Neuropathy peripheral
     Dosage: UNK UNKNOWN, UNKNOWN
     Route: 065
     Dates: start: 1998
  15. CODEINE [Suspect]
     Active Substance: CODEINE
     Indication: Neuropathy peripheral
     Dosage: UNK UNKNOWN, UNKNOWN
     Route: 065
     Dates: start: 1998
  16. METHADONE [Suspect]
     Active Substance: METHADONE HYDROCHLORIDE
     Indication: Neuropathy peripheral
     Dosage: UNK UNKNOWN, UNKNOWN
     Route: 065
     Dates: start: 1998

REACTIONS (2)
  - Dependence [Not Recovered/Not Resolved]
  - Overdose [Unknown]
